FAERS Safety Report 22140950 (Version 1)
Quarter: 2023Q1

REPORT INFORMATION
  Report Type: Spontaneous
  Country: US (occurrence: US)
  Receive Date: 20230327
  Receipt Date: 20230327
  Transmission Date: 20230417
  Serious: Yes (Other)
  Sender: FDA-Public Use
  Company Number: US-drreddys-SPO/USA/23/0162669

PATIENT
  Age: 49 Year
  Sex: Female

DRUGS (2)
  1. LETROZOLE [Suspect]
     Active Substance: LETROZOLE
     Indication: Breast cancer metastatic
     Route: 048
  2. ABEMACICLIB [Suspect]
     Active Substance: ABEMACICLIB
     Indication: Breast cancer metastatic

REACTIONS (5)
  - Cardiac contractility decreased [Unknown]
  - Ventricular extrasystoles [Unknown]
  - Myocardial fibrosis [Unknown]
  - Left ventricular dysfunction [Unknown]
  - Cardiac failure [Unknown]
